FAERS Safety Report 4444011-9 (Version None)
Quarter: 2004Q3

REPORT INFORMATION
  Report Type: 
  Country: None (occurrence: None)
  Receive Date: 20040729
  Receipt Date: 20030602
  Transmission Date: 20050211
  Serious: Yes (Other)
  Sender: FDA-Public Use
  Company Number: USA-2003-0006762

PATIENT
  Age: 24 Year
  Sex: Female

DRUGS (2)
  1. MORPHINE SULFATE [Suspect]
     Dosage: MG, INTRAVENOUS
     Route: 042
  2. OXYCONTIN [Concomitant]

REACTIONS (1)
  - DRUG ABUSER [None]
